FAERS Safety Report 20624550 (Version 1)
Quarter: 2022Q1

REPORT INFORMATION
  Report Type: Spontaneous
  Country: CN (occurrence: CN)
  Receive Date: 20220322
  Receipt Date: 20220322
  Transmission Date: 20220423
  Serious: Yes (Other)
  Sender: FDA-Public Use
  Company Number: CN-BAXTER-2022BAX006166

PATIENT
  Age: 36 Year
  Sex: Female
  Weight: 50 kg

DRUGS (13)
  1. CYCLOPHOSPHAMIDE [Suspect]
     Active Substance: CYCLOPHOSPHAMIDE
     Indication: Breast cancer female
     Dosage: 1ST AND 2ND CHEMOTHERAPY: CYCLOPHOSPHAMIDE FOR INJECTION (ENDOXAN CTX) + NS
     Route: 042
  2. CYCLOPHOSPHAMIDE [Suspect]
     Active Substance: CYCLOPHOSPHAMIDE
     Dosage: 3RD CHEMOTHERAPY: CYCLOPHOSPHAMIDE FOR INJECTION (ENDOXAN CTX) (760 MG) + NS (40 ML)
     Route: 042
     Dates: start: 20220107, end: 20220107
  3. CYCLOPHOSPHAMIDE [Suspect]
     Active Substance: CYCLOPHOSPHAMIDE
     Dosage: DOSE REINTRODUCED: CYCLOPHOSPHAMIDE FOR INJECTION (ENDOXAN CTX) + NS
     Route: 042
  4. SODIUM CHLORIDE [Suspect]
     Active Substance: SODIUM CHLORIDE
     Indication: Medication dilution
     Dosage: 1ST AND 2ND CHEMOTHERAPY: CYCLOPHOSPHAMIDE FOR INJECTION (ENDOXAN CTX) + NS
     Route: 042
  5. SODIUM CHLORIDE [Suspect]
     Active Substance: SODIUM CHLORIDE
     Dosage: 3RD CHEMOTHERAPY: CYCLOPHOSPHAMIDE FOR INJECTION (ENDOXAN CTX) (760 MG) + NS (40 ML)
     Route: 042
     Dates: start: 20220107, end: 20220107
  6. SODIUM CHLORIDE [Suspect]
     Active Substance: SODIUM CHLORIDE
     Dosage: DOSE REINTRODUCED: CYCLOPHOSPHAMIDE FOR INJECTION (ENDOXAN CTX) + NS
     Route: 042
  7. SODIUM CHLORIDE [Suspect]
     Active Substance: SODIUM CHLORIDE
     Dosage: 1ST AND 2ND CHEMOTHERAPY: DOCETAXEL INJECTION (TAXOTERE) + NS
     Route: 041
  8. SODIUM CHLORIDE [Suspect]
     Active Substance: SODIUM CHLORIDE
     Dosage: 3RD CHEMOTHERAPY: DOCETAXEL INJECTION (TAXOTERE) (100 MG) + NS (250 ML)
     Route: 041
     Dates: start: 20220107, end: 20220107
  9. SODIUM CHLORIDE [Suspect]
     Active Substance: SODIUM CHLORIDE
     Dosage: DOSE REINTRODUCED: DOCETAXEL INJECTION (TAXOTERE) + NS
     Route: 041
  10. TAXOTERE [Suspect]
     Active Substance: DOCETAXEL
     Indication: Breast cancer female
     Dosage: 1ST AND 2ND CHEMOTHERAPY: DOCETAXEL INJECTION (TAXOTERE) + NS
     Route: 041
  11. TAXOTERE [Suspect]
     Active Substance: DOCETAXEL
     Dosage: 3RD CHEMOTHERAPY: DOCETAXEL INJECTION (TAXOTERE) (100 MG) + NS (250 ML)
     Route: 041
     Dates: start: 20220107, end: 20220107
  12. TAXOTERE [Suspect]
     Active Substance: DOCETAXEL
     Dosage: DOSE REINTRODUCED: DOCETAXEL INJECTION (TAXOTERE) + NS
     Route: 041
  13. ANF-RHO [Concomitant]
     Active Substance: ANF-RHO
     Indication: Product used for unknown indication
     Route: 058
     Dates: start: 20220108

REACTIONS (2)
  - White blood cell count decreased [Recovered/Resolved]
  - Agranulocytosis [Recovered/Resolved]

NARRATIVE: CASE EVENT DATE: 20220113
